FAERS Safety Report 6700767-3 (Version None)
Quarter: 2010Q2

REPORT INFORMATION
  Report Type: 
  Country: None (occurrence: None)
  Receive Date: 20100428
  Receipt Date: 20100331
  Transmission Date: 20101027
  Serious: Yes (Death, Other)
  Sender: FDA-Public Use
  Company Number: US-ROCHE-699521

PATIENT
  Sex: Female

DRUGS (1)
  1. AVASTIN [Suspect]
     Dosage: DOSAGE NOT PROVIDED
     Route: 065

REACTIONS (2)
  - PULMONARY HAEMORRHAGE [None]
  - ROAD TRAFFIC ACCIDENT [None]
